FAERS Safety Report 19836831 (Version 1)
Quarter: 2021Q3

REPORT INFORMATION
  Report Type: Report from Study
  Country: US (occurrence: US)
  Receive Date: 20210916
  Receipt Date: 20210916
  Transmission Date: 20211014
  Serious: Yes (Hospitalization)
  Sender: FDA-Public Use
  Company Number: US-ROCHE-2908898

PATIENT
  Age: 65 Year
  Sex: Male
  Weight: 83.9 kg

DRUGS (9)
  1. VENETOCLAX. [Suspect]
     Active Substance: VENETOCLAX
     Dosage: 50 MG PO QD DAYS 8?14, CYCLE 3
     Route: 048
  2. IBRUTINIB [Suspect]
     Active Substance: IBRUTINIB
     Indication: CHRONIC LYMPHOCYTIC LEUKAEMIA
     Dosage: 420 MG PO QD ON DAYS 1?28, CYCLES 1?19?ON 22/AUG/2021, LAST DOSE OF IBRUTINIB WAS ADMINISTERED
     Route: 048
  3. OBINUTUZUMAB. [Suspect]
     Active Substance: OBINUTUZUMAB
     Dosage: 900 MG IV ON DAY 2, CYCLE 1
     Route: 042
  4. VENETOCLAX. [Suspect]
     Active Substance: VENETOCLAX
     Dosage: 400 MG PO QD DAYS 1?28, CYCLES 4?14?ON 22/AUG/2021, LAST DOSE OF VENETOCLAX WAS ADMINISTERED.
     Route: 048
  5. OBINUTUZUMAB. [Suspect]
     Active Substance: OBINUTUZUMAB
     Indication: CHRONIC LYMPHOCYTIC LEUKAEMIA
     Dosage: TOTAL DOSE ADMINISTERED THIS COURSE (DOSE) 0 MG, LAST ADMINISTERED DATE 14/DEC/2020?100 MG IV ON DAY
     Route: 042
  6. VENETOCLAX. [Suspect]
     Active Substance: VENETOCLAX
     Indication: CHRONIC LYMPHOCYTIC LEUKAEMIA
     Dosage: 20 MG PO QD DAYS 1?7 CYCLE 3
     Route: 048
  7. VENETOCLAX. [Suspect]
     Active Substance: VENETOCLAX
     Dosage: 100 MG PO QD DAYS 15?21, CYCLE 3
     Route: 048
  8. VENETOCLAX. [Suspect]
     Active Substance: VENETOCLAX
     Dosage: 200 MG PO QD DAYS 22?28, CYCLE 3
     Route: 048
  9. OBINUTUZUMAB. [Suspect]
     Active Substance: OBINUTUZUMAB
     Dosage: 1000 MG IV ON DAY 8, CYCLE 1 1000 MG IV ON DAY 15, CYCLE 1 1000 MG IV ON DAY 1, CYCLE 2?6
     Route: 042

REACTIONS (2)
  - COVID-19 [Recovered/Resolved]
  - Pseudomonas test positive [Recovered/Resolved]

NARRATIVE: CASE EVENT DATE: 20210823
